FAERS Safety Report 23222244 (Version 1)
Quarter: 2023Q4

REPORT INFORMATION
  Report Type: Spontaneous
  Country: US (occurrence: US)
  Receive Date: 20231123
  Receipt Date: 20231123
  Transmission Date: 20240109
  Serious: Yes (Other)
  Sender: FDA-Public Use
  Company Number: US-PFIZER INC-PV202300189800

PATIENT
  Age: 36 Year
  Sex: Male

DRUGS (4)
  1. DEXTROSE [Suspect]
     Active Substance: DEXTROSE\DEXTROSE MONOHYDRATE
     Indication: Hypoglycaemia
     Dosage: 2 AMPOULES OF 50% DEXTROSE
  2. DEXTROSE [Suspect]
     Active Substance: DEXTROSE\DEXTROSE MONOHYDRATE
     Dosage: 5% DEXTROSE
     Route: 042
  3. DEXTROSE [Suspect]
     Active Substance: DEXTROSE\DEXTROSE MONOHYDRATE
     Dosage: 10% DEXTROSE SLOWLY DECREASED FROM 200CC/HR TO100CC/HR
  4. DEXTROSE [Suspect]
     Active Substance: DEXTROSE\DEXTROSE MONOHYDRATE
     Dosage: 10% DEXTROSE EVENTUALLY DECREASED TO 75 CC/HR

REACTIONS (2)
  - Peripheral swelling [Unknown]
  - Scrotal swelling [Unknown]
